FAERS Safety Report 4790902-9 (Version None)
Quarter: 2005Q3

REPORT INFORMATION
  Report Type: 
  Country: None (occurrence: None)
  Receive Date: 20050914
  Receipt Date: 20041210
  Transmission Date: 20060218
  Serious: Yes (Death, Hospitalization)
  Sender: FDA-Public Use
  Company Number: 163-20785-04120356

PATIENT
  Age: 77 Year
  Sex: Female

DRUGS (3)
  1. THALOMID [Suspect]
     Indication: MULTIPLE MYELOMA
     Dosage: 100 MG, QD, ORAL
     Route: 048
     Dates: start: 20040510
  2. LEXAPROL [Concomitant]
  3. MYCELEX [Concomitant]

REACTIONS (9)
  - CLAVICLE FRACTURE [None]
  - DEATH [None]
  - DECREASED APPETITE [None]
  - DISEASE PROGRESSION [None]
  - FALL [None]
  - FATIGUE [None]
  - LETHARGY [None]
  - PAIN [None]
  - PATHOLOGICAL FRACTURE [None]
